FAERS Safety Report 8601056-2 (Version None)
Quarter: 2012Q3

REPORT INFORMATION
  Report Type: 
  Country: None (occurrence: None)
  Receive Date: 20120817
  Receipt Date: 20120804
  Transmission Date: 20120928
  Serious: Yes (Death)
  Sender: FDA-Public Use
  Company Number: US-MYLANLABS-2012S1016262

PATIENT
  Age: 64 Year
  Sex: Male
  Weight: 115.4 kg

DRUGS (1)
  1. FENTANYL-100 [Suspect]
     Indication: INSOMNIA
     Route: 062
     Dates: start: 20110830, end: 20110830

REACTIONS (8)
  - PULMONARY OEDEMA [None]
  - VICTIM OF HOMICIDE [None]
  - TOXICITY TO VARIOUS AGENTS [None]
  - RESPIRATORY DEPRESSION [None]
  - OFF LABEL USE [None]
  - SUBSTANCE USE [None]
  - BRAIN OEDEMA [None]
  - THERAPY NAIVE [None]
